FAERS Safety Report 9200969 (Version 1)
Quarter: 2013Q2

REPORT INFORMATION
  Report Type: Spontaneous
  Country: FR (occurrence: FR)
  Receive Date: 20130401
  Receipt Date: 20130401
  Transmission Date: 20140414
  Serious: Yes (Hospitalization)
  Sender: FDA-Public Use
  Company Number: FR-JNJFOC-20130315450

PATIENT
  Age: 62 Year
  Sex: Female

DRUGS (9)
  1. XARELTO [Suspect]
     Indication: PRODUCT USED FOR UNKNOWN INDICATION
     Route: 048
  2. XARELTO [Suspect]
     Indication: PRODUCT USED FOR UNKNOWN INDICATION
     Route: 048
     Dates: start: 20130215
  3. TERCIAN [Concomitant]
     Route: 048
  4. AVLOCARDYL [Concomitant]
     Route: 048
  5. RANITIDINE [Concomitant]
     Route: 048
  6. SERESTA [Concomitant]
     Route: 048
  7. VENLAFAXINE [Concomitant]
     Route: 048
  8. FUMAFER [Concomitant]
     Route: 048
  9. LAMALINE [Concomitant]
     Route: 048

REACTIONS (2)
  - Deep vein thrombosis [Recovering/Resolving]
  - Drug ineffective [Recovering/Resolving]
